FAERS Safety Report 8058252-5 (Version None)
Quarter: 2012Q1

REPORT INFORMATION
  Report Type: 
  Country: None (occurrence: None)
  Receive Date: 20120112
  Receipt Date: 20120103
  Transmission Date: 20120608
  Serious: Yes (Other)
  Sender: FDA-Public Use
  Company Number: 2012SP000868

PATIENT
  Age: 27 Month
  Sex: Male

DRUGS (2)
  1. DESLORATADINE [Suspect]
     Indication: RHINITIS
     Dosage: PO
     Route: 048
     Dates: start: 20111101
  2. ANTIBIOTIC [Concomitant]

REACTIONS (2)
  - PARTIAL SEIZURES [None]
  - PETIT MAL EPILEPSY [None]
